FAERS Safety Report 14120656 (Version 4)
Quarter: 2018Q1

REPORT INFORMATION
  Report Type: Spontaneous
  Country: MM (occurrence: MM)
  Receive Date: 20171024
  Receipt Date: 20180111
  Transmission Date: 20180508
  Serious: Yes (Hospitalization, Other)
  Sender: FDA-Public Use
  Company Number: MM-JNJFOC-20171019277

PATIENT
  Age: 40 Year
  Sex: Male
  Weight: 38 kg

DRUGS (21)
  1. COTRIMOXAZOLE [Suspect]
     Active Substance: SULFAMETHOXAZOLE\TRIMETHOPRIM
     Indication: TUBERCULOSIS
     Route: 048
     Dates: start: 201704, end: 20171019
  2. ETHIONAMIDE [Concomitant]
     Active Substance: ETHIONAMIDE
     Indication: TUBERCULOSIS
     Route: 048
     Dates: start: 20171116
  3. CYCLOSERINE. [Concomitant]
     Active Substance: CYCLOSERINE
     Indication: TUBERCULOSIS
     Route: 048
     Dates: start: 20171116
  4. ALDACTONE [Concomitant]
     Active Substance: SPIRONOLACTONE
     Indication: NEPHROTIC SYNDROME
     Route: 048
     Dates: start: 20171028
  5. BEDAQUILINE [Suspect]
     Active Substance: BEDAQUILINE
     Indication: TUBERCULOSIS
     Route: 048
     Dates: start: 20170914
  6. LINEZOLID. [Suspect]
     Active Substance: LINEZOLID
     Indication: TUBERCULOSIS
     Route: 048
     Dates: start: 20170914, end: 20171019
  7. LAMIVUDINE W/TENOFOVIR DISOPROXIL FUMARATE [Concomitant]
     Active Substance: LAMIVUDINE\TENOFOVIR DISOPROXIL FUMARATE
     Indication: HEPATITIS B
     Route: 048
     Dates: start: 20170818, end: 20171019
  8. LFX [Concomitant]
     Indication: TUBERCULOSIS
     Route: 048
     Dates: start: 20170726, end: 20171019
  9. CYCLOSERINE. [Concomitant]
     Active Substance: CYCLOSERINE
     Indication: TUBERCULOSIS
     Route: 048
     Dates: start: 20170726, end: 20171019
  10. LOSARTAN. [Concomitant]
     Active Substance: LOSARTAN
     Indication: NEPHROTIC SYNDROME
     Route: 048
     Dates: start: 20171028
  11. LAMIVUDINE W/TENOFOVIR DISOPROXIL FUMARATE [Concomitant]
     Active Substance: LAMIVUDINE\TENOFOVIR DISOPROXIL FUMARATE
     Indication: ANTIRETROVIRAL THERAPY
     Route: 048
     Dates: start: 20170818, end: 20171019
  12. ALDACTONE [Concomitant]
     Active Substance: SPIRONOLACTONE
     Indication: NEPHROTIC SYNDROME
     Route: 048
     Dates: start: 20170828, end: 20171019
  13. BEDAQUILINE [Suspect]
     Active Substance: BEDAQUILINE
     Indication: TUBERCULOSIS
     Route: 048
     Dates: end: 20171019
  14. LINEZOLID. [Suspect]
     Active Substance: LINEZOLID
     Indication: TUBERCULOSIS
     Route: 048
     Dates: start: 20171116
  15. NEVIRAPINE. [Suspect]
     Active Substance: NEVIRAPINE
     Indication: TUBERCULOSIS
     Route: 048
     Dates: start: 20170818, end: 20171019
  16. NEVIRAPINE. [Suspect]
     Active Substance: NEVIRAPINE
     Indication: TUBERCULOSIS
     Route: 048
     Dates: start: 20171129, end: 2017
  17. NEVIRAPINE. [Suspect]
     Active Substance: NEVIRAPINE
     Indication: TUBERCULOSIS
     Route: 048
     Dates: start: 20171213
  18. LOSARTAN. [Concomitant]
     Active Substance: LOSARTAN
     Indication: NEPHROTIC SYNDROME
     Route: 048
     Dates: start: 20170825, end: 20171019
  19. ETHIONAMIDE [Concomitant]
     Active Substance: ETHIONAMIDE
     Indication: TUBERCULOSIS
     Route: 048
     Dates: start: 20170726, end: 20171019
  20. LFX [Concomitant]
     Indication: TUBERCULOSIS
     Route: 048
     Dates: start: 20171116
  21. BEDAQUILINE [Suspect]
     Active Substance: BEDAQUILINE
     Indication: TUBERCULOSIS
     Route: 048
     Dates: start: 20171116

REACTIONS (1)
  - Hypersensitivity [Recovered/Resolved]

NARRATIVE: CASE EVENT DATE: 20171017
